FAERS Safety Report 11619771 (Version 1)
Quarter: 2015Q4

REPORT INFORMATION
  Report Type: Spontaneous
  Country: US (occurrence: US)
  Receive Date: 20151012
  Receipt Date: 20151012
  Transmission Date: 20160304
  Serious: No
  Sender: FDA-Public Use
  Company Number: US-BAYER-2015-441689

PATIENT
  Age: 82 Year
  Sex: Male
  Weight: 81.63 kg

DRUGS (1)
  1. MIRALAX [Suspect]
     Active Substance: POLYETHYLENE GLYCOL 3350
     Indication: ENEMA ADMINISTRATION
     Dosage: 2 DF, QD
     Route: 048
     Dates: start: 20151005

REACTIONS (2)
  - Product use issue [None]
  - Drug ineffective [None]
